FAERS Safety Report 9139960 (Version 1)
Quarter: 2013Q1

REPORT INFORMATION
  Report Type: Spontaneous
  Country: US (occurrence: US)
  Receive Date: 20130305
  Receipt Date: 20130305
  Transmission Date: 20140127
  Serious: Yes (Other)
  Sender: FDA-Public Use
  Company Number: US-JNJFOC-20130214140

PATIENT
  Age: 17 Year
  Sex: Female

DRUGS (6)
  1. INVEGA SUSTENNA [Suspect]
     Indication: PRODUCT USED FOR UNKNOWN INDICATION
     Dosage: DAY 1 DOSE
     Route: 030
     Dates: start: 2013
  2. INVEGA SUSTENNA [Suspect]
     Indication: PRODUCT USED FOR UNKNOWN INDICATION
     Route: 030
     Dates: start: 2013, end: 201302
  3. COGENTIN [Concomitant]
     Route: 048
  4. VISTARIL [Concomitant]
     Dosage: AS NEEDED
     Route: 048
  5. KLONOPIN [Concomitant]
     Dosage: AS NEEDED
     Route: 048
  6. SEROQUEL [Concomitant]
     Route: 048

REACTIONS (2)
  - Hypotension [Unknown]
  - Oxygen saturation decreased [Unknown]
